FAERS Safety Report 18345928 (Version 3)
Quarter: 2021Q3

REPORT INFORMATION
  Report Type: Report from Study
  Country: US (occurrence: US)
  Receive Date: 20201005
  Receipt Date: 20210803
  Transmission Date: 20211014
  Serious: Yes (Death, Other)
  Sender: FDA-Public Use
  Company Number: US-JNJFOC-20200943940

PATIENT
  Sex: Male

DRUGS (4)
  1. CABAZITAXEL [Suspect]
     Active Substance: CABAZITAXEL
     Indication: PROSTATE CANCER METASTATIC
     Route: 065
  2. ENZALUTAMIDE [Suspect]
     Active Substance: ENZALUTAMIDE
     Indication: PROSTATE CANCER METASTATIC
     Route: 048
  3. PREDNISONE. [Suspect]
     Active Substance: PREDNISONE
     Indication: PROSTATE CANCER METASTATIC
     Route: 048
  4. ZYTIGA [Suspect]
     Active Substance: ABIRATERONE ACETATE
     Indication: PROSTATE CANCER METASTATIC
     Route: 048

REACTIONS (39)
  - Asthenia [Unknown]
  - Musculoskeletal discomfort [Unknown]
  - Hypertension [Unknown]
  - Hypertensive crisis [Unknown]
  - Polyneuropathy [Unknown]
  - Musculoskeletal pain [Unknown]
  - Urinary tract obstruction [Unknown]
  - Neuropathy peripheral [Unknown]
  - Sepsis [Fatal]
  - Cardiac disorder [Unknown]
  - Renal impairment [Unknown]
  - Nausea [Unknown]
  - Diarrhoea [Unknown]
  - Neck pain [Unknown]
  - Pyelocaliectasis [Unknown]
  - Peripheral motor neuropathy [Unknown]
  - Cardiac failure [Fatal]
  - Renal failure [Unknown]
  - Spinal cord compression [Unknown]
  - Growing pains [Unknown]
  - Musculoskeletal chest pain [Unknown]
  - Cerebral haemorrhage [Fatal]
  - Pulmonary embolism [Fatal]
  - Disease progression [Fatal]
  - Back pain [Unknown]
  - Flank pain [Unknown]
  - Radiculopathy [Unknown]
  - Peripheral sensorimotor neuropathy [Unknown]
  - Pain in extremity [Unknown]
  - Hydronephrosis [Unknown]
  - Acute coronary syndrome [Fatal]
  - Pneumonia [Fatal]
  - Decreased appetite [Unknown]
  - Sciatica [Unknown]
  - Acute kidney injury [Fatal]
  - Infection [Unknown]
  - Vomiting [Unknown]
  - Haematuria [Unknown]
  - Peripheral sensory neuropathy [Unknown]
